FAERS Safety Report 7910811-3 (Version None)
Quarter: 2011Q4

REPORT INFORMATION
  Report Type: 
  Country: None (occurrence: None)
  Receive Date: 20111114
  Receipt Date: 20111101
  Transmission Date: 20120403
  Serious: Yes (Hospitalization)
  Sender: FDA-Public Use
  Company Number: CO-AMGEN-COLSP2011057525

PATIENT
  Age: 66 Year
  Sex: Female

DRUGS (4)
  1. FOLIC ACID [Concomitant]
     Dosage: 1 MG, 1X/DAY
  2. ENBREL [Suspect]
     Indication: RHEUMATOID ARTHRITIS
     Dosage: 50 MG, WEEKLY
     Dates: start: 20050101
  3. LOSARTAN [Concomitant]
     Dosage: 100 MG, 1X/DAY
  4. PREDNISOLONE [Concomitant]
     Dosage: 5 MG, 1X/DAY

REACTIONS (1)
  - RESPIRATORY DISTRESS [None]
